FAERS Safety Report 24045079 (Version 1)
Quarter: 2024Q3

REPORT INFORMATION
  Report Type: Report from Study
  Country: HN (occurrence: HN)
  Receive Date: 20240703
  Receipt Date: 20240703
  Transmission Date: 20241017
  Serious: Yes (Hospitalization, Disabling)
  Sender: MYLAN
  Company Number: HN-MYLANLABS-2024M1061276

PATIENT
  Age: 54 Year
  Sex: Male
  Weight: 71.21 kg

DRUGS (1)
  1. LIPITOR [Suspect]
     Active Substance: ATORVASTATIN CALCIUM
     Indication: Product used for unknown indication
     Dosage: 20 MILLIGRAM, QD (1 TABLET ONCE A DAY)
     Route: 048

REACTIONS (3)
  - Eye injury [Not Recovered/Not Resolved]
  - Visual impairment [Not Recovered/Not Resolved]
  - Face injury [Not Recovered/Not Resolved]

NARRATIVE: CASE EVENT DATE: 20230201
